FAERS Safety Report 8098309-6 (Version None)
Quarter: 2012Q1

REPORT INFORMATION
  Report Type: 
  Country: None (occurrence: None)
  Receive Date: 20120129
  Receipt Date: 20111019
  Transmission Date: 20120608
  Serious: No
  Sender: FDA-Public Use
  Company Number: US-ABBOTT-11P-163-0867526-00

PATIENT
  Sex: Female
  Weight: 54.48 kg

DRUGS (4)
  1. CLIMARA [Concomitant]
     Indication: PRODUCT USED FOR UNKNOWN INDICATION
     Dosage: PATCH
  2. HUMIRA [Suspect]
     Indication: CROHN'S DISEASE
     Dates: start: 20111011
  3. UNKNOWN STEROID [Concomitant]
     Indication: PRODUCT USED FOR UNKNOWN INDICATION
  4. PENTASA [Concomitant]
     Indication: PRODUCT USED FOR UNKNOWN INDICATION

REACTIONS (4)
  - CHEST PAIN [None]
  - PAIN IN EXTREMITY [None]
  - SENSATION OF FOREIGN BODY [None]
  - PAINFUL RESPIRATION [None]
